FAERS Safety Report 4479199-7 (Version None)
Quarter: 2004Q4

REPORT INFORMATION
  Report Type: 
  Country: None (occurrence: None)
  Receive Date: 20041015
  Receipt Date: 20040930
  Transmission Date: 20050328
  Serious: Yes (Other)
  Sender: FDA-Public Use
  Company Number: 2004236688BR

PATIENT
  Age: 52 Year
  Sex: Female

DRUGS (2)
  1. ALPRAZOLAM [Suspect]
     Indication: NERVOUSNESS
     Dosage: 0.125 MG, BID, ORAL ; 0.25 MG, QD, ORAL
     Route: 048
     Dates: start: 20040801
  2. ROFECOXIB [Concomitant]

REACTIONS (7)
  - BLOOD PRESSURE INCREASED [None]
  - BREAST PAIN [None]
  - DYSGEUSIA [None]
  - HYPERTROPHY BREAST [None]
  - PRURITUS [None]
  - SALIVARY HYPERSECRETION [None]
  - VISUAL DISTURBANCE [None]
